FAERS Safety Report 12186515 (Version 1)
Quarter: 2016Q1

REPORT INFORMATION
  Report Type: Spontaneous
  Country: US (occurrence: US)
  Receive Date: 20160317
  Receipt Date: 20160317
  Transmission Date: 20160526
  Serious: Yes (Other)
  Sender: FDA-Public Use
  Company Number: US-BAYER-2016-046673

PATIENT
  Sex: Male

DRUGS (3)
  1. PARACETAMOL [Concomitant]
     Active Substance: ACETAMINOPHEN
  2. ALEVE [Suspect]
     Active Substance: NAPROXEN SODIUM
  3. ADVIL [Suspect]
     Active Substance: IBUPROFEN

REACTIONS (1)
  - Gastric haemorrhage [None]
